FAERS Safety Report 16784946 (Version 1)
Quarter: 2019Q3

REPORT INFORMATION
  Report Type: Spontaneous
  Country: SE (occurrence: SE)
  Receive Date: 20190909
  Receipt Date: 20190909
  Transmission Date: 20191005
  Serious: Yes (Hospitalization)
  Sender: FDA-Public Use
  Company Number: SE-TEVA-2019-SE-1103410

PATIENT
  Age: 25 Year
  Sex: Female
  Weight: 55 kg

DRUGS (3)
  1. DIMOR 2 MG FILM-COATED [Suspect]
     Active Substance: LOPERAMIDE
     Dosage: 72 ST
     Route: 048
     Dates: start: 20190813, end: 20190813
  2. TRAMADOL. [Suspect]
     Active Substance: TRAMADOL
     Dates: start: 20190813, end: 20190813
  3. LERGIGAN (PROMETHAZINE HYDROCHLORIDE) [Suspect]
     Active Substance: PROMETHAZINE HYDROCHLORIDE
     Dosage: ^TV?^
     Dates: start: 20190813, end: 20190813

REACTIONS (5)
  - Abdominal pain upper [Unknown]
  - Intentional self-injury [Unknown]
  - Fatigue [Unknown]
  - Depressed level of consciousness [Unknown]
  - Intentional overdose [Unknown]

NARRATIVE: CASE EVENT DATE: 20190813
